FAERS Safety Report 15700557 (Version 2)
Quarter: 2019Q1

REPORT INFORMATION
  Report Type: Spontaneous
  Country: FR (occurrence: FR)
  Receive Date: 20181207
  Receipt Date: 20190103
  Transmission Date: 20190417
  Serious: Yes (Other)
  Sender: FDA-Public Use
  Company Number: FR-ASTRAZENECA-2018SF58966

PATIENT
  Age: 24824 Day
  Sex: Female
  Weight: 89 kg

DRUGS (5)
  1. LYNPARZA [Suspect]
     Active Substance: OLAPARIB
     Indication: OVARIAN CANCER
     Route: 048
     Dates: start: 20180509
  2. ARANESP [Concomitant]
     Active Substance: DARBEPOETIN ALFA
     Dosage: 500
  3. ELIQUIS [Interacting]
     Active Substance: APIXABAN
     Indication: PHLEBITIS
     Route: 048
     Dates: start: 20181124
  4. ELIQUIS [Interacting]
     Active Substance: APIXABAN
     Indication: PHLEBITIS
     Dosage: 5 MG DOSAGE WAS DECREASED AT ONE TABLET ON MORNING AND EVENING
     Route: 048
  5. AERIUS [Concomitant]
     Dosage: AT ONE DAILY.

REACTIONS (5)
  - Phlebitis [Unknown]
  - Headache [Recovered/Resolved]
  - Nausea [Recovered/Resolved]
  - Drug interaction [Unknown]
  - Increased tendency to bruise [Unknown]

NARRATIVE: CASE EVENT DATE: 20180509
